FAERS Safety Report 25267529 (Version 4)
Quarter: 2025Q3

REPORT INFORMATION
  Report Type: Report from Study
  Country: US (occurrence: US)
  Receive Date: 20250505
  Receipt Date: 20250919
  Transmission Date: 20251020
  Serious: Yes (Other)
  Sender: ACADIA PHARMACEUTICALS
  Company Number: US-ACADIA PHARMACEUTICALS INC.-ACA-2025-PIM-004941

PATIENT
  Age: 69 Year
  Sex: Male

DRUGS (1)
  1. NUPLAZID [Suspect]
     Active Substance: PIMAVANSERIN TARTRATE
     Indication: Parkinson^s disease psychosis
     Dosage: 34 MILLIGRAM, DAILY
     Route: 048
     Dates: start: 20250414, end: 20250707

REACTIONS (6)
  - Hallucination [Unknown]
  - Rapid eye movement sleep behaviour disorder [Recovered/Resolved]
  - Disorientation [Not Recovered/Not Resolved]
  - Dyskinesia [Unknown]
  - Memory impairment [Unknown]
  - Drug ineffective [Recovered/Resolved]

NARRATIVE: CASE EVENT DATE: 20250417
